FAERS Safety Report 5581594-X (Version None)
Quarter: 2008Q1

REPORT INFORMATION
  Report Type: 
  Country: None (occurrence: None)
  Receive Date: 20080103
  Receipt Date: 20080103
  Transmission Date: 20080703
  Serious: Yes (Disabling)
  Sender: FDA-Public Use
  Company Number: None

PATIENT
  Sex: Male
  Weight: 95.2554 kg

DRUGS (1)
  1. METOPROLOL SUCCINATE EXTENDED RELEASE [Suspect]
     Indication: HYPERTENSION
     Dosage: 25 MG TWICE DAILY PO
     Route: 048
     Dates: start: 20071101, end: 20071130

REACTIONS (3)
  - BLOOD PRESSURE INCREASED [None]
  - CONDITION AGGRAVATED [None]
  - HEART RATE INCREASED [None]
